FAERS Safety Report 5774121-5 (Version None)
Quarter: 2008Q2

REPORT INFORMATION
  Report Type: 
  Country: None (occurrence: None)
  Receive Date: 20080616
  Receipt Date: 20080604
  Transmission Date: 20081010
  Serious: Yes (Death, Disabling, Other)
  Sender: FDA-Public Use
  Company Number: DE-GILEAD-2008-0014963

PATIENT
  Sex: Male
  Weight: 82 kg

DRUGS (2)
  1. TRUVADA [Suspect]
     Indication: ACQUIRED IMMUNODEFICIENCY SYNDROME
     Route: 048
     Dates: start: 20071110, end: 20071207
  2. SUSTIVA [Suspect]
     Route: 048
     Dates: start: 20071110, end: 20071207

REACTIONS (2)
  - INTERSTITIAL LUNG DISEASE [None]
  - SUDDEN CARDIAC DEATH [None]
